FAERS Safety Report 25266206 (Version 1)
Quarter: 2025Q2

REPORT INFORMATION
  Report Type: Spontaneous
  Country: IL (occurrence: IL)
  Receive Date: 20250504
  Receipt Date: 20250504
  Transmission Date: 20250716
  Serious: Yes (Other)
  Sender: OXFORD PHARMACEUTICALS, LLC
  Company Number: IL-Oxford Pharmaceuticals, LLC-2176110

PATIENT
  Age: 18 Year
  Sex: Male

DRUGS (4)
  1. LEVETIRACETAM [Suspect]
     Active Substance: LEVETIRACETAM
     Indication: Epilepsy
  2. CARBAMAZEPINE [Concomitant]
     Active Substance: CARBAMAZEPINE
  3. ETHOSUXIMIDE [Concomitant]
     Active Substance: ETHOSUXIMIDE
  4. VALPROIC ACID [Concomitant]
     Active Substance: VALPROIC ACID

REACTIONS (3)
  - Seizure [Unknown]
  - Drug ineffective [Unknown]
  - Condition aggravated [Unknown]
